FAERS Safety Report 13776444 (Version 1)
Quarter: 2017Q3

REPORT INFORMATION
  Report Type: Spontaneous
  Country: ES (occurrence: ES)
  Receive Date: 20170721
  Receipt Date: 20170721
  Transmission Date: 20171127
  Serious: Yes (Life-Threatening, Hospitalization)
  Sender: FDA-Public Use
  Company Number: ES-PFIZER INC-2738704

PATIENT
  Age: 71 Year
  Sex: Male
  Weight: 69 kg

DRUGS (4)
  1. ENOXAPARIN [Interacting]
     Active Substance: ENOXAPARIN
     Indication: PROPHYLAXIS
     Dosage: 40 MG, FREQ: 1 DAY; INTERVAL: 1
     Route: 058
     Dates: start: 20140527, end: 20140527
  2. ENOXAPARIN [Interacting]
     Active Substance: ENOXAPARIN
     Dosage: 40 MG,  FREQ: 1 DAY; INTERVAL: 1
     Route: 058
     Dates: start: 20140528, end: 20140528
  3. HEPARIN SODIUM. [Suspect]
     Active Substance: HEPARIN SODIUM
     Indication: PROPHYLAXIS
     Dosage: 2500 IU, FREQ: 1 DAY; INTERVAL: 1
     Route: 042
     Dates: start: 20140529, end: 20140529
  4. ACTILYSE [Interacting]
     Active Substance: ALTEPLASE
     Indication: THROMBOTIC CEREBRAL INFARCTION
     Dosage: UNK
     Route: 042
     Dates: start: 20140527, end: 20140527

REACTIONS (3)
  - Cerebral haemorrhage [Recovered/Resolved]
  - Hydrocephalus [Unknown]
  - Drug interaction [Unknown]

NARRATIVE: CASE EVENT DATE: 20140527
